FAERS Safety Report 16831885 (Version 1)
Quarter: 2019Q4

REPORT INFORMATION
  Report Type: Spontaneous
  Country: US (occurrence: US)
  Receive Date: 20190919
  Receipt Date: 20190919
  Transmission Date: 20200122
  Serious: No
  Sender: FDA-Public Use
  Company Number: None

PATIENT
  Age: 65 Year
  Sex: Female

DRUGS (2)
  1. ORENCIA [Suspect]
     Active Substance: ABATACEPT
  2. ORENCIA [Suspect]
     Active Substance: ABATACEPT
     Dates: start: 20190624, end: 20190702

REACTIONS (1)
  - Dizziness [None]

NARRATIVE: CASE EVENT DATE: 20190725
